FAERS Safety Report 6197604-5 (Version None)
Quarter: 2009Q2

REPORT INFORMATION
  Report Type: 
  Country: None (occurrence: None)
  Receive Date: 20090521
  Receipt Date: 20090519
  Transmission Date: 20091009
  Serious: Yes (Other)
  Sender: FDA-Public Use
  Company Number: PHHY2009CH19092

PATIENT
  Sex: Male

DRUGS (6)
  1. RASILEZ [Suspect]
     Indication: HYPERTENSION
     Dosage: 300 MG PER DAY
     Dates: start: 20090122, end: 20090505
  2. PHYSIOTENS ^GIULINI^ [Concomitant]
     Indication: HYPERTENSION
     Dosage: 0.4 MG PER DAY
  3. ZANIDIP [Concomitant]
     Indication: HYPERTENSION
     Dosage: 10 MG PER DAY
  4. ASPIRIN [Concomitant]
     Dosage: 100 MG PER DAY
  5. FLUCTINE [Concomitant]
     Dosage: UNK
  6. NEXIUM [Concomitant]
     Dosage: UNK

REACTIONS (3)
  - GYNAECOMASTIA [None]
  - NODULE [None]
  - PAIN [None]
